FAERS Safety Report 25744973 (Version 2)
Quarter: 2025Q3

REPORT INFORMATION
  Report Type: Report from Study
  Country: US (occurrence: US)
  Receive Date: 20250901
  Receipt Date: 20250910
  Transmission Date: 20251020
  Serious: Yes (Other)
  Sender: ABBVIE
  Company Number: US-ABBVIE-6438058

PATIENT
  Age: 64 Year
  Sex: Male

DRUGS (2)
  1. SKYRIZI [Suspect]
     Active Substance: RISANKIZUMAB-RZAA
     Indication: Crohn^s disease
     Route: 058
  2. SKYRIZI [Suspect]
     Active Substance: RISANKIZUMAB-RZAA
     Indication: Crohn^s disease
     Route: 042
     Dates: start: 20250113

REACTIONS (6)
  - Obstruction [Recovering/Resolving]
  - Fatigue [Not Recovered/Not Resolved]
  - Unevaluable event [Not Recovered/Not Resolved]
  - Pain [Recovering/Resolving]
  - Ageusia [Recovering/Resolving]
  - Swelling [Recovering/Resolving]

NARRATIVE: CASE EVENT DATE: 20250101
